FAERS Safety Report 5671162-3 (Version None)
Quarter: 2008Q1

REPORT INFORMATION
  Report Type: 
  Country: None (occurrence: None)
  Receive Date: 20080318
  Receipt Date: 20080306
  Transmission Date: 20080703
  Serious: Yes (Hospitalization, Other)
  Sender: FDA-Public Use
  Company Number: US-ELI_LILLY_AND_COMPANY-US200803001331

PATIENT
  Sex: Male

DRUGS (5)
  1. CYMBALTA [Suspect]
     Indication: DEPRESSION
     Dosage: 30 MG, 2/D
  2. REMERON [Concomitant]
     Dosage: 1 D/F, UNK
  3. ATIVAN [Concomitant]
     Dosage: 1 D/F, UNK
  4. TOPROL [Concomitant]
     Indication: ATRIAL FIBRILLATION
     Dosage: 1 D/F, UNK
  5. CARDIZEM [Concomitant]
     Indication: ATRIAL FIBRILLATION
     Dosage: 1 D/F, UNK

REACTIONS (14)
  - ARTHRALGIA [None]
  - ATRIAL FIBRILLATION [None]
  - DELIRIUM [None]
  - DYSPHAGIA [None]
  - DYSPNOEA [None]
  - EYE OPERATION [None]
  - GAIT DISTURBANCE [None]
  - HALLUCINATION, VISUAL [None]
  - INCOHERENT [None]
  - KNEE ARTHROPLASTY [None]
  - MEMORY IMPAIRMENT [None]
  - RETINAL DETACHMENT [None]
  - SLEEP APNOEA SYNDROME [None]
  - VISION BLURRED [None]
